FAERS Safety Report 14283587 (Version 1)
Quarter: 2017Q4

REPORT INFORMATION
  Report Type: Spontaneous
  Country: US (occurrence: US)
  Receive Date: 20171213
  Receipt Date: 20171213
  Transmission Date: 20180321
  Serious: No
  Sender: FDA-Public Use
  Company Number: PHEH2017US040397

PATIENT
  Sex: Male
  Weight: 79 kg

DRUGS (2)
  1. TIMOLOL. [Suspect]
     Active Substance: TIMOLOL
     Indication: EXFOLIATION GLAUCOMA
     Dosage: 1 GTT, BID
     Route: 047
     Dates: start: 201706
  2. BRIMONIDINE [Suspect]
     Active Substance: BRIMONIDINE TARTRATE
     Indication: EXFOLIATION GLAUCOMA
     Dosage: UNK
     Route: 047

REACTIONS (6)
  - Foreign body sensation in eyes [Unknown]
  - Ocular hyperaemia [Unknown]
  - Conjunctivitis [Unknown]
  - Dry eye [Unknown]
  - Eye irritation [Unknown]
  - Tinnitus [Unknown]
